FAERS Safety Report 17631939 (Version 2)
Quarter: 2020Q2

REPORT INFORMATION
  Report Type: Spontaneous
  Country: FR (occurrence: FR)
  Receive Date: 20200406
  Receipt Date: 20200518
  Transmission Date: 20200713
  Serious: Yes (Other)
  Sender: FDA-Public Use
  Company Number: FR-MALLINCKRODT-T202001051

PATIENT
  Age: 27 Year
  Sex: Female
  Weight: 51 kg

DRUGS (7)
  1. UVADEX [Suspect]
     Active Substance: METHOXSALEN
     Dosage: UNK (EXTRACARPOREAL)
     Route: 050
     Dates: start: 20200311
  2. CALCIUM GLUCONATE. [Concomitant]
     Active Substance: CALCIUM GLUCONATE
     Indication: PROPHYLAXIS
     Dosage: 7 ML/H
     Route: 065
  3. MINOCYCLINE [Concomitant]
     Active Substance: MINOCYCLINE HYDROCHLORIDE
     Indication: PRODUCT USED FOR UNKNOWN INDICATION
     Dosage: UNK
     Route: 065
     Dates: start: 20200220
  4. UVADEX [Suspect]
     Active Substance: METHOXSALEN
     Dosage: UNK (EXTRACARPOREAL)
     Route: 050
     Dates: start: 20200302
  5. ANTICOAGULANT CITRATE [Concomitant]
     Indication: ANTICOAGULANT THERAPY
     Dosage: 182 MILLILITER
     Route: 065
  6. CLAVENTIN [Concomitant]
     Indication: PRODUCT USED FOR UNKNOWN INDICATION
     Dosage: UNK
     Route: 065
     Dates: start: 20200220
  7. UVADEX [Suspect]
     Active Substance: METHOXSALEN
     Indication: TRANSPLANT REJECTION
     Dosage: UNK (EXTRACORPOREAL)
     Route: 050
     Dates: start: 20200217, end: 20200218

REACTIONS (9)
  - Product use in unapproved indication [Unknown]
  - Respiratory failure [Unknown]
  - Hyponatraemia [Unknown]
  - Pyrexia [Unknown]
  - General physical health deterioration [Unknown]
  - Hyperkalaemia [Recovered/Resolved]
  - Hyperphosphataemia [Unknown]
  - Cough [Unknown]
  - Pain [Unknown]

NARRATIVE: CASE EVENT DATE: 202002
